FAERS Safety Report 12715829 (Version 2)
Quarter: 2016Q3

REPORT INFORMATION
  Report Type: Spontaneous
  Country: US (occurrence: US)
  Receive Date: 20160906
  Receipt Date: 20160908
  Transmission Date: 20161109
  Serious: No
  Sender: FDA-Public Use
  Company Number: US-PFIZER INC-2016417096

PATIENT
  Age: 36 Year
  Sex: Female
  Weight: 74.84 kg

DRUGS (3)
  1. METRONIDAZOLE. [Suspect]
     Active Substance: METRONIDAZOLE
     Indication: VAGINITIS BACTERIAL
     Dosage: UNKNOWN DOSE; TOOK TABLET BY MOUTH 2 TIMES PER DAY FOR 7 DAYS
     Route: 048
     Dates: start: 20160818, end: 20160824
  2. FLUCONAZOLE. [Suspect]
     Active Substance: FLUCONAZOLE
     Indication: FUNGAL INFECTION
     Dosage: TOOK 1 TABLET BY MOUTH TWICE/ TOOK FIRST FLUCONAZOLE TABLET ON 25AUG2016
     Route: 048
     Dates: start: 20160825, end: 20160825
  3. FLUCONAZOLE. [Suspect]
     Active Substance: FLUCONAZOLE
     Dosage: TOOK 1 TABLET BY MOUTH TWICE/ SECOND TABLET ON 29AUG2016
     Route: 048
     Dates: start: 20160829, end: 20160829

REACTIONS (3)
  - Dysgeusia [Not Recovered/Not Resolved]
  - Paraesthesia oral [Not Recovered/Not Resolved]
  - Drug effect incomplete [Unknown]

NARRATIVE: CASE EVENT DATE: 20160829
